FAERS Safety Report 5073544-X (Version None)
Quarter: 2006Q3

REPORT INFORMATION
  Report Type: 
  Country: None (occurrence: None)
  Receive Date: 20060717
  Receipt Date: 20051221
  Transmission Date: 20061208
  Serious: No
  Sender: FDA-Public Use
  Company Number: 2005002436

PATIENT

DRUGS (1)
  1. TARCEVA [Suspect]
     Indication: NON-SMALL CELL LUNG CANCER
     Dosage: 150 MG (QD), ORAL
     Route: 048
     Dates: start: 20050601

REACTIONS (6)
  - ACNE [None]
  - DIARRHOEA [None]
  - EYE IRRITATION [None]
  - HOT FLUSH [None]
  - RASH [None]
  - ROSACEA [None]
